FAERS Safety Report 20384507 (Version 1)
Quarter: 2022Q1

REPORT INFORMATION
  Report Type: Spontaneous
  Country: US (occurrence: US)
  Receive Date: 20220127
  Receipt Date: 20220127
  Transmission Date: 20220423
  Serious: No
  Sender: FDA-Public Use
  Company Number: US-ALLERGAN-2113231US

PATIENT

DRUGS (1)
  1. BOTOX [Suspect]
     Active Substance: ONABOTULINUMTOXINA
     Indication: Off label use
     Dosage: UNK, SINGLE

REACTIONS (3)
  - Patient dissatisfaction with treatment [Unknown]
  - Off label use [Unknown]
  - Drug ineffective for unapproved indication [Unknown]
